FAERS Safety Report 5084358-9 (Version None)
Quarter: 2006Q3

REPORT INFORMATION
  Report Type: 
  Country: None (occurrence: None)
  Receive Date: 20060817
  Receipt Date: 20060817
  Transmission Date: 20061208
  Serious: Yes (Hospitalization, Other)
  Sender: FDA-Public Use
  Company Number: None

PATIENT
  Age: 25 Year
  Sex: Male
  Weight: 86.1834 kg

DRUGS (5)
  1. CHLORPHENIRAMINE MALEATE AND PSEUDOEPHEDRINE HCL [Suspect]
     Indication: HYPERSENSITIVITY
     Dosage: ORAL
     Route: 048
     Dates: start: 20010907
  2. EPHEDRINE TABLETS [Suspect]
     Indication: WEIGHT DECREASED
     Dosage: 2 PILLS PO QD ORAL
     Route: 048
     Dates: start: 20010701, end: 20010901
  3. TYLENOL EXTRA STRENGTH [Concomitant]
  4. CLARITIN [Concomitant]
  5. NASONEX [Concomitant]

REACTIONS (12)
  - AMNESIA [None]
  - ASTHENIA [None]
  - BALANCE DISORDER [None]
  - CEREBRAL ARTERY OCCLUSION [None]
  - CEREBRAL INFARCTION [None]
  - CEREBROVASCULAR ACCIDENT [None]
  - EMOTIONAL DISORDER [None]
  - FALL [None]
  - HEMIANOPIA HOMONYMOUS [None]
  - MEMORY IMPAIRMENT [None]
  - MUSCULOSKELETAL STIFFNESS [None]
  - PHOTOPHOBIA [None]
